FAERS Safety Report 9781034 (Version 1)
Quarter: 2013Q4

REPORT INFORMATION
  Report Type: Spontaneous
  Country: US (occurrence: None)
  Receive Date: 20131223
  Receipt Date: 20131223
  Transmission Date: 20140711
  Serious: Yes (Disabling, Other)
  Sender: FDA-Public Use
  Company Number: None

PATIENT
  Age: 65 Year
  Sex: Female
  Weight: 81.65 kg

DRUGS (2)
  1. LEVOFLOXACIN [Suspect]
     Indication: SINUSITIS
     Dosage: 1 TABLLET ONCE DAILY TAKEN BY MOUTH
     Route: 048
     Dates: start: 20131211, end: 20131219
  2. LEVOFLOXACIN [Suspect]
     Indication: EYE INFECTION
     Dosage: 1 TABLLET ONCE DAILY TAKEN BY MOUTH
     Route: 048
     Dates: start: 20131211, end: 20131219

REACTIONS (5)
  - Dyspnoea [None]
  - Pain in extremity [None]
  - Palpitations [None]
  - Pain [None]
  - Pain in extremity [None]
